FAERS Safety Report 5072036-1 (Version None)
Quarter: 2006Q3

REPORT INFORMATION
  Report Type: 
  Country: None (occurrence: None)
  Receive Date: 20060807
  Receipt Date: 20060725
  Transmission Date: 20061208
  Serious: Yes (Hospitalization)
  Sender: FDA-Public Use
  Company Number: DE-AVENTIS-200612172DE

PATIENT
  Sex: Female

DRUGS (1)
  1. ULTRACAIN D-S [Suspect]
     Dosage: DOSE: 2X1.7
     Route: 004

REACTIONS (6)
  - ABDOMINAL PAIN [None]
  - DYSPHAGIA [None]
  - JAW DISORDER [None]
  - LATEX ALLERGY [None]
  - PHARYNGEAL OEDEMA [None]
  - SWELLING [None]
